FAERS Safety Report 14842699 (Version 1)
Quarter: 2018Q2

REPORT INFORMATION
  Report Type: Spontaneous
  Country: US (occurrence: US)
  Receive Date: 20180503
  Receipt Date: 20180503
  Transmission Date: 20180711
  Serious: No
  Sender: FDA-Public Use
  Company Number: US-MYLANLABS-2018M1023882

PATIENT
  Age: 26 Year
  Sex: Male
  Weight: 82 kg

DRUGS (2)
  1. BUSPIRONE HYDROCHLORIDE TABLETS, USP [Suspect]
     Active Substance: BUSPIRONE HYDROCHLORIDE
     Indication: DEPRESSION
  2. BUSPIRONE HYDROCHLORIDE TABLETS, USP [Suspect]
     Active Substance: BUSPIRONE HYDROCHLORIDE
     Indication: ANXIETY
     Dosage: UNK
     Route: 048

REACTIONS (12)
  - Feeding disorder [Recovering/Resolving]
  - Throat irritation [Recovering/Resolving]
  - Off label use [Unknown]
  - Speech disorder [Recovered/Resolved]
  - Choking sensation [Recovered/Resolved]
  - Wrong technique in product usage process [Recovered/Resolved]
  - Oropharyngeal pain [Recovering/Resolving]
  - Product quality issue [Recovering/Resolving]
  - Insomnia [Recovering/Resolving]
  - Dysphagia [Recovering/Resolving]
  - Lacrimation increased [Recovered/Resolved]
  - Pharyngeal ulceration [Recovering/Resolving]

NARRATIVE: CASE EVENT DATE: 20180405
